FAERS Safety Report 6042520-2 (Version None)
Quarter: 2009Q1

REPORT INFORMATION
  Report Type: 
  Country: None (occurrence: None)
  Receive Date: 20090117
  Receipt Date: 20090108
  Transmission Date: 20090719
  Serious: Yes (Death, Life-Threatening, Other)
  Sender: FDA-Public Use
  Company Number: GB-JNJFOC-20080604914

PATIENT
  Age: 8 Decade
  Sex: Female
  Weight: 74 kg

DRUGS (14)
  1. REMICADE [Suspect]
     Indication: RHEUMATOID ARTHRITIS
     Route: 042
  2. ASPIRIN [Concomitant]
  3. ATENOLOL [Concomitant]
  4. CLOPIDOGREL [Concomitant]
  5. CO-DYDRAMOL [Concomitant]
  6. FRUSEMIDE [Concomitant]
  7. NITROGLYCERIN [Concomitant]
  8. ISOSORBIDE MONONITRATE [Concomitant]
  9. METHOTREXATE [Concomitant]
  10. NICORANDIL [Concomitant]
  11. PANTOPRAZOLE SODIUM [Concomitant]
  12. QUINIDINE BISULFATE [Concomitant]
  13. RAMIPRIL [Concomitant]
  14. TRAMADOL HCL [Concomitant]

REACTIONS (1)
  - CEREBROVASCULAR ACCIDENT [None]
